FAERS Safety Report 5309298-9 (Version None)
Quarter: 2007Q2

REPORT INFORMATION
  Report Type: 
  Country: None (occurrence: None)
  Receive Date: 20070427
  Receipt Date: 20070416
  Transmission Date: 20071010
  Serious: Yes (Other)
  Sender: FDA-Public Use
  Company Number: JP-ROCHE-442190

PATIENT
  Age: 11 Year
  Sex: Female
  Weight: 42 kg

DRUGS (5)
  1. TAMIFLU [Suspect]
     Route: 048
     Dates: start: 20060227, end: 20060227
  2. TAMIFLU [Suspect]
     Dosage: DOSE DECREASED.
     Route: 048
     Dates: start: 20060228, end: 20060228
  3. MUCODYNE [Concomitant]
     Route: 048
     Dates: start: 20060227, end: 20060306
  4. POLARAMINE [Concomitant]
     Route: 048
     Dates: start: 20060227, end: 20060306
  5. 1 CONCOMITANT DRUG [Concomitant]
     Dosage: REPORTED AS ASTOMARI (DEXTROMETHORPHAN HYDROBROMIDE).
     Route: 048
     Dates: start: 20060227, end: 20060306

REACTIONS (1)
  - ABNORMAL BEHAVIOUR [None]
